FAERS Safety Report 7425975-8 (Version None)
Quarter: 2011Q2

REPORT INFORMATION
  Report Type: 
  Country: None (occurrence: None)
  Receive Date: 20110420
  Receipt Date: 20110413
  Transmission Date: 20111010
  Serious: Yes (Death)
  Sender: FDA-Public Use
  Company Number: AT-ROCHE-771283

PATIENT
  Age: 59 Year

DRUGS (1)
  1. HERCEPTIN [Suspect]
     Indication: METASTATIC GASTRIC CANCER
     Route: 065
     Dates: start: 20110408

REACTIONS (1)
  - CEREBRAL HAEMORRHAGE [None]
